FAERS Safety Report 8381150-4 (Version None)
Quarter: 2012Q2

REPORT INFORMATION
  Report Type: 
  Country: None (occurrence: None)
  Receive Date: 20120522
  Receipt Date: 20111123
  Transmission Date: 20120825
  Serious: Yes (Other)
  Sender: FDA-Public Use
  Company Number: 2011-07511

PATIENT
  Age: 70 Year
  Sex: Male

DRUGS (15)
  1. LIPITOR [Concomitant]
  2. SPIRONALCTONE [Concomitant]
  3. COUMADIN [Concomitant]
  4. THERACYS [Suspect]
     Indication: BLADDER CANCER
     Dates: start: 20110817
  5. LISINOPRIL [Concomitant]
  6. JENUVIA [Concomitant]
  7. INTERFERON [Suspect]
     Dosage: 50 MILLION UNITS, IV, BLADDER
     Route: 042
     Dates: start: 20110817, end: 20110817
  8. SANTURA [Concomitant]
  9. PRADAXA [Concomitant]
  10. CRESTOR [Concomitant]
  11. CARVEDILOL [Concomitant]
  12. COREG [Concomitant]
  13. MULTI-VITAMINS [Concomitant]
  14. ASPIRIN [Concomitant]
  15. SYMBASTAT [Concomitant]

REACTIONS (20)
  - NAUSEA [None]
  - DYSGEUSIA [None]
  - BOVINE TUBERCULOSIS [None]
  - WHITE BLOOD CELL COUNT INCREASED [None]
  - HAEMOGLOBIN DECREASED [None]
  - BLOOD UREA INCREASED [None]
  - HYPERHIDROSIS [None]
  - NEUTROPHIL PERCENTAGE INCREASED [None]
  - EOSINOPHIL COUNT DECREASED [None]
  - FATIGUE [None]
  - RED BLOOD CELL COUNT DECREASED [None]
  - LYMPHOCYTE PERCENTAGE DECREASED [None]
  - BLOOD GLUCOSE INCREASED [None]
  - FAECES DISCOLOURED [None]
  - WEIGHT INCREASED [None]
  - PYREXIA [None]
  - CHROMATURIA [None]
  - DRUG INTERACTION [None]
  - CHILLS [None]
  - BLOOD POTASSIUM INCREASED [None]
